FAERS Safety Report 7639036-6 (Version None)
Quarter: 2011Q3

REPORT INFORMATION
  Report Type: 
  Country: None (occurrence: None)
  Receive Date: 20110727
  Receipt Date: 20110724
  Transmission Date: 20111222
  Serious: No
  Sender: FDA-Public Use
  Company Number: US-PFIZER INC-2011168033

PATIENT
  Sex: Female
  Weight: 68 kg

DRUGS (3)
  1. VITAMIN TAB [Concomitant]
  2. PREMARIN [Suspect]
     Indication: VULVOVAGINAL DRYNESS
     Dosage: UNK
     Route: 067
     Dates: start: 20110721, end: 20110724
  3. HYDROCHLOROTHIAZIDE [Concomitant]
     Dosage: UNK

REACTIONS (9)
  - DIZZINESS [None]
  - HEADACHE [None]
  - DYSPNOEA [None]
  - NAUSEA [None]
  - ASTHENIA [None]
  - BACK PAIN [None]
  - GAIT DISTURBANCE [None]
  - ABDOMINAL PAIN UPPER [None]
  - OROPHARYNGEAL PAIN [None]
